FAERS Safety Report 21303049 (Version 1)
Quarter: 2022Q3

REPORT INFORMATION
  Report Type: Spontaneous
  Country: CA (occurrence: None)
  Receive Date: 20220907
  Receipt Date: 20220907
  Transmission Date: 20221026
  Serious: Yes (Other)
  Sender: FDA-Public Use
  Company Number: CA-ROCHE-3173358

PATIENT
  Age: 47 Year
  Sex: Female

DRUGS (11)
  1. SOMATROPIN [Suspect]
     Active Substance: SOMATROPIN
     Indication: Growth hormone deficiency
     Route: 058
  2. MEDROXYPROGESTERONE ACETATE [Concomitant]
     Active Substance: MEDROXYPROGESTERONE ACETATE
  3. DESOXIMETASONE [Concomitant]
     Active Substance: DESOXIMETASONE
  4. ESTRACE [Concomitant]
     Active Substance: ESTRADIOL
  5. PERINDOPRIL ERBUMINE [Concomitant]
     Active Substance: PERINDOPRIL ERBUMINE
  6. PRAVASTATIN [Concomitant]
     Active Substance: PRAVASTATIN
  7. SEMAGLUTIDE [Concomitant]
     Active Substance: SEMAGLUTIDE
  8. SEMAGLUTIDE [Concomitant]
     Active Substance: SEMAGLUTIDE
  9. SEMAGLUTIDE [Concomitant]
     Active Substance: SEMAGLUTIDE
  10. SYNTHROID [Concomitant]
     Active Substance: LEVOTHYROXINE SODIUM
  11. CHOLECALCIFEROL [Concomitant]
     Active Substance: CHOLECALCIFEROL

REACTIONS (4)
  - Blood cholesterol increased [Not Recovered/Not Resolved]
  - Blood glucose abnormal [Not Recovered/Not Resolved]
  - Hypertension [Not Recovered/Not Resolved]
  - Transient ischaemic attack [Not Recovered/Not Resolved]
